FAERS Safety Report 9656588 (Version 2)
Quarter: 2014Q2

REPORT INFORMATION
  Report Type: Spontaneous
  Country: DK (occurrence: CA)
  Receive Date: 20131030
  Receipt Date: 20140407
  Transmission Date: 20141212
  Serious: Yes (Life-Threatening, Hospitalization, Other)
  Sender: FDA-Public Use
  Company Number: CA-FRI-1000050613

PATIENT
  Age: 72 Year
  Sex: Female

DRUGS (2)
  1. CELEXA [Suspect]
     Dosage: 20 MG
     Route: 048
     Dates: start: 20130517, end: 20130517
  2. LIPITOR [Concomitant]
     Dosage: DAILY DOSE NOT REPORTED

REACTIONS (4)
  - Dyspnoea [Recovered/Resolved]
  - Swollen tongue [Recovered/Resolved]
  - Lip swelling [Recovered/Resolved]
  - Abdominal discomfort [Recovered/Resolved]
